FAERS Safety Report 9812707 (Version 1)
Quarter: 2014Q1

REPORT INFORMATION
  Report Type: Spontaneous
  Country: US (occurrence: US)
  Receive Date: 20140113
  Receipt Date: 20140113
  Transmission Date: 20141002
  Serious: Yes (Other)
  Sender: FDA-Public Use
  Company Number: 2013SP007362

PATIENT
  Age: 34 Year
  Sex: Male
  Weight: 94 kg

DRUGS (1)
  1. VANCOMYCIN [Suspect]
     Indication: ENDOCARDITIS
     Route: 042

REACTIONS (3)
  - Nephropathy toxic [Unknown]
  - Renal impairment [Unknown]
  - Blood creatinine increased [Unknown]
